FAERS Safety Report 4344751-6 (Version None)
Quarter: 2004Q2

REPORT INFORMATION
  Report Type: 
  Country: None (occurrence: None)
  Receive Date: 20040420
  Receipt Date: 20040407
  Transmission Date: 20050107
  Serious: Yes (Death, Hospitalization)
  Sender: FDA-Public Use
  Company Number: NSADSS2002017068

PATIENT
  Age: 60 Year
  Sex: Male

DRUGS (8)
  1. REMICADE [Suspect]
     Indication: CROHN'S DISEASE
     Dosage: 400 MG, 1 IN 1 AS NECESSARY, INTRAVENOUS DRIP
     Route: 041
     Dates: start: 20020412, end: 20020412
  2. REMICADE [Suspect]
     Indication: CROHN'S DISEASE
     Dosage: 400 MG, 1 IN 1 AS NECESSARY, INTRAVENOUS DRIP
     Route: 041
     Dates: start: 20020427, end: 20020427
  3. URBASON (METHYLPREDNISOLONE) [Concomitant]
  4. PAROXETINE HCL [Concomitant]
  5. LORAZEPAM [Concomitant]
  6. OMEPRAZOLE [Concomitant]
  7. NADROPARINE CALCIUM (NADROPARINE CALCIUM) [Concomitant]
  8. METHYLPREDNISOLONE [Concomitant]

REACTIONS (11)
  - BACTERIA URINE IDENTIFIED [None]
  - DECUBITUS ULCER [None]
  - ENTEROBACTER BACTERAEMIA [None]
  - HEPATIC FAILURE [None]
  - KLEBSIELLA INFECTION [None]
  - NEUROPATHY PERIPHERAL [None]
  - PROSTRATION [None]
  - REFUSAL OF TREATMENT BY PATIENT [None]
  - RENAL FAILURE ACUTE [None]
  - SEPTIC SHOCK [None]
  - URINARY TRACT INFECTION PSEUDOMONAL [None]
